FAERS Safety Report 7771624-9 (Version None)
Quarter: 2011Q3

REPORT INFORMATION
  Report Type: 
  Country: None (occurrence: None)
  Receive Date: 20110922
  Receipt Date: 20110330
  Transmission Date: 20111222
  Serious: No
  Sender: FDA-Public Use
  Company Number: US-ASTRAZENECA-2011SE13039

PATIENT
  Age: 576 Month
  Sex: Female
  Weight: 78.5 kg

DRUGS (6)
  1. SEROQUEL [Suspect]
     Route: 048
     Dates: start: 20101201, end: 20110301
  2. VYCODAN [Concomitant]
  3. XANAX [Concomitant]
     Indication: PANIC ATTACK
  4. SEROQUEL [Suspect]
     Indication: DEPRESSION
     Route: 048
     Dates: start: 20080101, end: 20101201
  5. SEROQUEL [Suspect]
     Route: 048
  6. PRISTIQ [Concomitant]
     Indication: DEPRESSION

REACTIONS (8)
  - THERAPEUTIC RESPONSE UNEXPECTED [None]
  - DRUG DOSE OMISSION [None]
  - INSOMNIA [None]
  - FEELING JITTERY [None]
  - CRYING [None]
  - WEIGHT INCREASED [None]
  - DRUG INEFFECTIVE [None]
  - DEPRESSION [None]
